FAERS Safety Report 9980347 (Version 3)
Quarter: 2014Q1

REPORT INFORMATION
  Report Type: Spontaneous
  Country: IT (occurrence: None)
  Receive Date: 20140304
  Receipt Date: 20140326
  Transmission Date: 20141002
  Serious: Yes (Other)
  Sender: FDA-Public Use
  Company Number: AUR-APL-2014-01897

PATIENT
  Age: 83 Year
  Sex: Female

DRUGS (4)
  1. RAMIPRIL [Suspect]
     Indication: HYPERTENSION
     Dosage: 5 MG (5 MG, 1 IN 1D), ORAL
     Route: 048
     Dates: end: 20130216
  2. LOBIDIUR (NEBICARD-H) [Concomitant]
  3. CARDIOASPIRIN (ACETYLSALICYLIC ACID) [Concomitant]
  4. MICROSER (BETAHISTINE HYDROCHLORIDE) [Concomitant]

REACTIONS (4)
  - Swelling face [None]
  - Swollen tongue [None]
  - Local swelling [None]
  - C-reactive protein increased [None]
